FAERS Safety Report 15725656 (Version 1)
Quarter: 2018Q4

REPORT INFORMATION
  Report Type: Spontaneous
  Country: GB (occurrence: GB)
  Receive Date: 20181215
  Receipt Date: 20181215
  Transmission Date: 20190205
  Serious: Yes (Life-Threatening)
  Sender: FDA-Public Use
  Company Number: GB-TEVA-2018-GB-986315

PATIENT
  Age: 13 Month
  Sex: Male
  Weight: 10.4 kg

DRUGS (7)
  1. PREDNISOLONE. [Suspect]
     Active Substance: PREDNISOLONE
     Dosage: 10 MILLIGRAM DAILY;
     Route: 048
     Dates: start: 20180807, end: 20180810
  2. OMEPRAZOLE. [Concomitant]
     Active Substance: OMEPRAZOLE
  3. VIGABATRIN. [Concomitant]
     Active Substance: VIGABATRIN
  4. RANITIDINE. [Concomitant]
     Active Substance: RANITIDINE
  5. PREDNISOLONE. [Suspect]
     Active Substance: PREDNISOLONE
     Indication: INFANTILE SPASMS
     Dosage: 20 MILLIGRAM DAILY;
     Route: 048
     Dates: start: 20180731, end: 20180806
  6. PREDNISOLONE. [Suspect]
     Active Substance: PREDNISOLONE
     Dosage: 30 MILLIGRAM DAILY;
     Route: 048
     Dates: start: 20180724, end: 20180730
  7. PREDNISOLONE. [Suspect]
     Active Substance: PREDNISOLONE
     Dosage: 40 MILLIGRAM DAILY;
     Route: 048
     Dates: start: 20180710, end: 20180723

REACTIONS (1)
  - Intracranial venous sinus thrombosis [Recovered/Resolved with Sequelae]

NARRATIVE: CASE EVENT DATE: 20180722
